FAERS Safety Report 8520501-4 (Version None)
Quarter: 2012Q3

REPORT INFORMATION
  Report Type: 
  Country: None (occurrence: None)
  Receive Date: 20120719
  Receipt Date: 20120710
  Transmission Date: 20120928
  Serious: Yes (Other)
  Sender: FDA-Public Use
  Company Number: ES-CELGENEUS-144-21880-12071056

PATIENT
  Sex: Male
  Weight: 67 kg

DRUGS (9)
  1. ASPIRIN [Concomitant]
     Indication: THROMBOSIS PROPHYLAXIS
     Dosage: 100 MILLIGRAM
     Route: 065
  2. REVLIMID [Suspect]
     Dosage: 25 MILLIGRAM
     Route: 048
     Dates: start: 20100825, end: 20100915
  3. DEXAMETHASONE [Concomitant]
     Indication: MULTIPLE MYELOMA
     Dosage: 160 MILLIGRAM
     Route: 048
     Dates: start: 20100628, end: 20100725
  4. REVLIMID [Suspect]
     Dosage: 25 MILLIGRAM
     Route: 048
     Dates: start: 20100726, end: 20100815
  5. DEXAMETHASONE [Concomitant]
     Dosage: 160 MILLIGRAM
     Route: 048
     Dates: start: 20100825, end: 20100922
  6. REVLIMID [Suspect]
     Indication: MULTIPLE MYELOMA
     Dosage: 25 MILLIGRAM
     Route: 048
     Dates: start: 20100628, end: 20100718
  7. REVLIMID [Suspect]
     Dosage: 25 MILLIGRAM
     Route: 048
     Dates: start: 20100923, end: 20101014
  8. DEXAMETHASONE [Concomitant]
     Dosage: 160 MILLIGRAM
     Route: 048
     Dates: start: 20100923, end: 20101014
  9. DEXAMETHASONE [Concomitant]
     Dosage: 160 MILLIGRAM
     Route: 048
     Dates: start: 20100726, end: 20100824

REACTIONS (1)
  - BLADDER TRANSITIONAL CELL CARCINOMA [None]
